FAERS Safety Report 7126314-2 (Version None)
Quarter: 2010Q4

REPORT INFORMATION
  Report Type: 
  Country: None (occurrence: None)
  Receive Date: 20101129
  Receipt Date: 20100304
  Transmission Date: 20110411
  Serious: No
  Sender: FDA-Public Use
  Company Number: A0847585A

PATIENT
  Age: 93 Year
  Sex: Female

DRUGS (5)
  1. LANOXIN [Suspect]
     Dosage: .125MG PER DAY
     Route: 048
     Dates: start: 20090901
  2. DIGOXIN [Suspect]
     Dosage: 1TAB IN THE MORNING
     Route: 048
     Dates: start: 20090901, end: 20100228
  3. BLOOD PRESSURE MEDICATION [Concomitant]
  4. SIMVASTATIN [Concomitant]
  5. CHOLESTEROL REDUCING AGENT [Concomitant]
     Indication: BLOOD CHOLESTEROL INCREASED

REACTIONS (8)
  - ASTHENIA [None]
  - DECREASED APPETITE [None]
  - DEPRESSION [None]
  - DYSPNOEA [None]
  - INSOMNIA [None]
  - RHINORRHOEA [None]
  - VISION BLURRED [None]
  - WEIGHT DECREASED [None]
